FAERS Safety Report 9515424 (Version 4)
Quarter: 2014Q2

REPORT INFORMATION
  Report Type: Spontaneous
  Country: JP (occurrence: JP)
  Receive Date: 20130911
  Receipt Date: 20140416
  Transmission Date: 20141212
  Serious: Yes (Hospitalization, Other)
  Sender: FDA-Public Use
  Company Number: PHHY2013JP099094

PATIENT
  Age: 26 Year
  Sex: Male
  Weight: 75 kg

DRUGS (5)
  1. RASILEZ [Suspect]
     Indication: HYPERTENSION
     Dosage: 150 MG, DAILY
     Route: 048
     Dates: start: 20130720, end: 20130903
  2. NORVASC [Concomitant]
     Indication: HYPERTENSION
     Dosage: 10 MG, UNK
     Route: 048
     Dates: start: 20130711
  3. NORVASC [Concomitant]
     Dosage: 5 MG, DAILY
     Dates: start: 20130720
  4. NATRIX [Concomitant]
     Indication: HYPERTENSION
     Dosage: 0.5 MG, UNK
     Route: 048
     Dates: start: 20130809
  5. MICARDIS [Concomitant]
     Dosage: 40 MG, DAILY
     Dates: start: 20130720

REACTIONS (3)
  - Rhabdomyolysis [Recovered/Resolved]
  - Blood creatine phosphokinase increased [Unknown]
  - Blood pressure increased [Unknown]
